FAERS Safety Report 8698679 (Version 3)
Quarter: 2014Q1

REPORT INFORMATION
  Report Type: Spontaneous
  Country: US (occurrence: US)
  Receive Date: 20120802
  Receipt Date: 20140224
  Transmission Date: 20141002
  Serious: Yes (Other)
  Sender: FDA-Public Use
  Company Number: US-PFIZER INC-2012186014

PATIENT
  Age: 51 Year
  Sex: Female
  Weight: 83.45 kg

DRUGS (4)
  1. LYRICA [Suspect]
     Indication: FIBROMYALGIA
     Dosage: 150 MG, 2X/DAY
     Route: 048
     Dates: start: 2008, end: 20120305
  2. LYRICA [Suspect]
     Indication: PAIN
     Dosage: 150 MG, UNK
     Dates: start: 20120806, end: 20140115
  3. LYRICA [Suspect]
     Dosage: 300 MG, UNK
     Dates: start: 20140115
  4. LISINOPRIL W/HYDROCHLOROTHIAZIDE [Concomitant]
     Dosage: 20/25 MG, UNK

REACTIONS (8)
  - Hypothyroidism [Unknown]
  - Weight decreased [Unknown]
  - Pain [Not Recovered/Not Resolved]
  - Insomnia [Not Recovered/Not Resolved]
  - Emotional disorder [Not Recovered/Not Resolved]
  - Activities of daily living impaired [Not Recovered/Not Resolved]
  - Apathy [Not Recovered/Not Resolved]
  - Drug ineffective [Unknown]
